FAERS Safety Report 7068357 (Version 2)
Quarter: 2013Q4

REPORT INFORMATION
  Report Type: Spontaneous
  Country: US (occurrence: None)
  Receive Date: 20090724
  Receipt Date: 20131219
  Transmission Date: 20140711
  Serious: Yes (Other)
  Sender: FDA-Public Use
  Company Number: 2009S1005608

PATIENT
  Age: 68 Year
  Sex: Male
  Weight: 70.58 kg

DRUGS (11)
  1. EZ PREP (EZ PREP) (75 MILLILITRE (S), ORAL SOLUTION) [Suspect]
     Indication: COLONOSCOPY
     Dosage: PO
     Route: 048
     Dates: start: 20081123, end: 20081123
  2. ALEVE [Suspect]
     Indication: ARTHRALGIA
     Dosage: 2 IN 24 HOURS
     Dates: end: 200902
  3. LISINOPRIL (LISINOPRIL) [Concomitant]
  4. HYDROCHLOROTHIAZIDE (HYDROCHLOROTHIAZIDE) [Concomitant]
  5. SYNTHROID (LEVOTHYROXINE SODIUM) [Concomitant]
  6. SINGULAIR (MONTELUKAST SODIUM) TABLET [Concomitant]
  7. CALCIUM (CALCIUM) [Concomitant]
  8. MAGNESIUM (MAGNESIUM) [Concomitant]
  9. ONE A DAY VITAMIN (ERGOCALCIFEROL, PYRIDOXINE HYDROCHLORIDE, CYANOCOBALAMIN, RETINOL, RIBOFLAVIN, NICOTINAMIDE, SODIUM ASCORBATE, THIAMINE MONONITRATE) [Concomitant]
  10. OSTEO BI-FLEX (GLUCOSAMINE HYDROCHLORIDE, CHONDROITIN SULFATE) [Concomitant]
  11. STANBACK POWDERS (ACETYLSALICYLIC ACID) [Concomitant]

REACTIONS (5)
  - Renal impairment [None]
  - Renal failure [None]
  - Nephropathy toxic [None]
  - Anaemia [None]
  - Hyperparathyroidism secondary [None]
